FAERS Safety Report 6965151-6 (Version None)
Quarter: 2010Q3

REPORT INFORMATION
  Report Type: 
  Country: None (occurrence: None)
  Receive Date: 20100903
  Receipt Date: 20100824
  Transmission Date: 20110219
  Serious: Yes (Other)
  Sender: FDA-Public Use
  Company Number: US-WYE-H17192810

PATIENT
  Sex: Female
  Weight: 56.75 kg

DRUGS (3)
  1. EFFEXOR [Suspect]
     Indication: DEPRESSION
  2. VENLAFAXINE HYDROCHLORIDE [Suspect]
  3. LIPITOR [Suspect]
     Dosage: 20 MG, UNKNOWN FREQUENCY

REACTIONS (7)
  - AGGRESSION [None]
  - ANXIETY [None]
  - DEPRESSION [None]
  - DRUG DEPENDENCE [None]
  - DRUG WITHDRAWAL SYNDROME [None]
  - EMOTIONAL DISORDER [None]
  - NEOPLASM MALIGNANT [None]
